FAERS Safety Report 9257858 (Version 4)
Quarter: 2014Q1

REPORT INFORMATION
  Report Type: Spontaneous
  Country: CA (occurrence: CA)
  Receive Date: 20130426
  Receipt Date: 20140203
  Transmission Date: 20141002
  Serious: No
  Sender: FDA-Public Use
  Company Number: CA-SANOFI-AVENTIS-2013SA037922

PATIENT
  Age: 37 Year
  Sex: Female

DRUGS (5)
  1. ARAVA [Suspect]
     Indication: PSORIATIC ARTHROPATHY
     Route: 048
     Dates: start: 20130108
  2. NAPROXEN [Concomitant]
     Dosage: FREQUENCY: 2OR 3 TIMES A DAY
  3. PARIET [Concomitant]
  4. METHOTREXATE [Concomitant]
     Route: 058
  5. METHOTREXATE [Concomitant]
     Route: 048

REACTIONS (1)
  - Exposure during pregnancy [Unknown]
